FAERS Safety Report 5579062-4 (Version None)
Quarter: 2007Q4

REPORT INFORMATION
  Report Type: 
  Country: None (occurrence: None)
  Receive Date: 20071221
  Receipt Date: 20071214
  Transmission Date: 20080405
  Serious: Yes (Other)
  Sender: FDA-Public Use
  Company Number: CHPA2007US13730

PATIENT
  Age: 15 Month
  Sex: Male
  Weight: 8.2 kg

DRUGS (1)
  1. BENEFIBER W/ WHEAT DEXTRIN (NCH)(WHEAT DEXTRIN) [Suspect]
     Indication: CONSTIPATION
     Dosage: 2 TSP, BID, ORAL
     Route: 048
     Dates: start: 20071214

REACTIONS (2)
  - FLATULENCE [None]
  - VOMITING [None]
